FAERS Safety Report 6269517-1 (Version None)
Quarter: 2009Q3

REPORT INFORMATION
  Report Type: 
  Country: None (occurrence: None)
  Receive Date: 20090715
  Receipt Date: 20090127
  Transmission Date: 20100115
  Serious: No
  Sender: FDA-Public Use
  Company Number: US-TYCO HEALTHCARE/MALLINCKRODT-T200900151

PATIENT
  Age: 43 Year
  Sex: Female
  Weight: 65.76 kg

DRUGS (8)
  1. OXYCODONE HCL [Suspect]
     Indication: BACK PAIN
     Dosage: 5 MG, FIVE TIMES A DAY
     Route: 048
  2. DARVOCET-N 100 [Concomitant]
     Indication: BACK PAIN
     Dosage: 100/650 MG, BID
     Route: 048
  3. DARVOCET-N 100 [Concomitant]
     Indication: SCIATICA
  4. TENORMIN [Concomitant]
     Indication: ARRHYTHMIA
     Dosage: 25 MG, QD
     Route: 048
  5. KLONOPIN [Concomitant]
     Indication: PANIC DISORDER
     Dosage: 1 MG, QD
     Route: 048
  6. FOLIC ACID [Concomitant]
     Indication: SUPPLEMENTATION THERAPY
     Dosage: 2 MG, QD
     Route: 048
  7. METHOTREXATE [Concomitant]
     Indication: SARCOIDOSIS
     Dosage: 10 MG, WEEKLY
     Route: 048
  8. PREMARIN [Concomitant]
     Indication: HORMONE REPLACEMENT THERAPY
     Dosage: .625 MG, QD
     Route: 048

REACTIONS (8)
  - AGITATION [None]
  - DEFAECATION URGENCY [None]
  - DRUG EFFECT DECREASED [None]
  - DYSGEUSIA [None]
  - HOT FLUSH [None]
  - MUSCLE SPASMS [None]
  - ORAL PRURITUS [None]
  - WITHDRAWAL SYNDROME [None]
